FAERS Safety Report 9200765 (Version 1)
Quarter: 2013Q1

REPORT INFORMATION
  Report Type: Spontaneous
  Country: BR (occurrence: None)
  Receive Date: 20130328
  Receipt Date: 20130328
  Transmission Date: 20140127
  Serious: Yes (Other)
  Sender: FDA-Public Use
  Company Number: None

PATIENT
  Age: 25 Year
  Sex: Female
  Weight: 53 kg

DRUGS (1)
  1. NUVARING [Suspect]
     Route: 067
     Dates: start: 20120220, end: 20120520

REACTIONS (3)
  - Rash generalised [None]
  - Rash erythematous [None]
  - Rash pruritic [None]
